FAERS Safety Report 13514604 (Version 2)
Quarter: 2017Q4

REPORT INFORMATION
  Report Type: Report from Study
  Country: DE (occurrence: DE)
  Receive Date: 20170504
  Receipt Date: 20171018
  Transmission Date: 20180320
  Serious: Yes (Hospitalization)
  Sender: FDA-Public Use
  Company Number: DE-JNJFOC-20170426184

PATIENT
  Age: 54 Year
  Sex: Female
  Weight: 68 kg

DRUGS (2)
  1. USTEKINUMAB [Suspect]
     Active Substance: USTEKINUMAB
     Indication: PSORIASIS
     Route: 058
     Dates: start: 20111013
  2. FENTANYL. [Concomitant]
     Active Substance: FENTANYL
     Dosage: 50 UNIT UNSPECIFIED (SINCE 15 YEARS)
     Route: 048

REACTIONS (4)
  - Renal colic [Recovered/Resolved]
  - Pyelonephritis [Recovering/Resolving]
  - Spinal pain [Recovered/Resolved]
  - Nephrolithiasis [Recovered/Resolved]

NARRATIVE: CASE EVENT DATE: 20161009
